FAERS Safety Report 4981989-9 (Version None)
Quarter: 2006Q2

REPORT INFORMATION
  Report Type: 
  Country: None (occurrence: None)
  Receive Date: 20060425
  Receipt Date: 20050202
  Transmission Date: 20061013
  Serious: Yes (Hospitalization)
  Sender: FDA-Public Use
  Company Number: US-MERCK-0502USA00361

PATIENT
  Age: 63 Year
  Sex: Female
  Weight: 84 kg

DRUGS (14)
  1. VIOXX [Suspect]
     Indication: ARTHRITIS
     Route: 048
     Dates: start: 19991104, end: 20040914
  2. VIOXX [Suspect]
     Route: 065
     Dates: start: 20021209
  3. BENTYL [Concomitant]
     Route: 065
  4. XANAX [Concomitant]
     Route: 065
  5. PROTONIX [Concomitant]
     Route: 065
  6. LASIX [Concomitant]
     Route: 065
  7. COZAAR [Concomitant]
     Route: 065
  8. TENORMIN [Concomitant]
     Route: 065
  9. ASPIRIN [Concomitant]
     Route: 065
  10. ARMOUR THYROID TABLETS [Concomitant]
     Route: 065
  11. ASCORBIC ACID [Concomitant]
     Route: 065
  12. PLAVIX [Concomitant]
     Route: 065
  13. LOVENOX [Concomitant]
     Route: 058
  14. NITROGLYCERIN [Concomitant]
     Route: 065

REACTIONS (11)
  - ANGINA PECTORIS [None]
  - BACK DISORDER [None]
  - BACK PAIN [None]
  - CARDIOVASCULAR DISORDER [None]
  - CHOLELITHIASIS [None]
  - CORONARY ARTERY DISEASE [None]
  - CORONARY ARTERY STENOSIS [None]
  - EMBOLISM [None]
  - LUMBAR RADICULOPATHY [None]
  - MYOCARDIAL INFARCTION [None]
  - RESPIRATORY TRACT CONGESTION [None]
